FAERS Safety Report 7169570-7 (Version None)
Quarter: 2010Q4

REPORT INFORMATION
  Report Type: 
  Country: None (occurrence: None)
  Receive Date: 20101217
  Receipt Date: 20101203
  Transmission Date: 20110411
  Serious: Yes (Death, Other)
  Sender: FDA-Public Use
  Company Number: GB-RANBAXY-2010R1-40169

PATIENT
  Age: 72 Year
  Sex: Male

DRUGS (4)
  1. RANITIDINE [Suspect]
     Indication: PAIN
     Dosage: 300 MG, QD
     Route: 065
  2. NIFEDIPINE [Suspect]
     Indication: PAIN
     Dosage: 15 MG, 5/1 DAYS
     Route: 065
  3. ISOSORBIDE DINITRATE [Suspect]
     Indication: PAIN
     Dosage: 30 MG, QD
     Route: 065
  4. DILTIAZEM HYDROCHLORIDE [Suspect]
     Indication: PAIN
     Dosage: 360 MG, QD
     Route: 065

REACTIONS (8)
  - ACIDOSIS [None]
  - CARDIOGENIC SHOCK [None]
  - HEPATITIS TOXIC [None]
  - HYPERKALAEMIA [None]
  - NEPHROPATHY TOXIC [None]
  - PULMONARY OEDEMA [None]
  - RENAL FAILURE ACUTE [None]
  - URTICARIA [None]
